FAERS Safety Report 6209256-6 (Version None)
Quarter: 2009Q2

REPORT INFORMATION
  Report Type: 
  Country: None (occurrence: None)
  Receive Date: 20090529
  Receipt Date: 20090521
  Transmission Date: 20091009
  Serious: Yes (Hospitalization)
  Sender: FDA-Public Use
  Company Number: US-BAYER-200911608BCC

PATIENT
  Age: 55 Year
  Sex: Male
  Weight: 87 kg

DRUGS (4)
  1. ALEVE [Interacting]
     Indication: DRUG USE FOR UNKNOWN INDICATION
  2. COUMADIN [Interacting]
     Indication: DRUG USE FOR UNKNOWN INDICATION
  3. CNTO 328 (ANTI -IL- 6 MONOCLONAL ANTIBODY) AND VELCADE O VELCADE [Suspect]
     Indication: MULTIPLE MYELOMA
     Dates: start: 20090313, end: 20090101
  4. BORTEZOMIB [Suspect]
     Indication: MULTIPLE MYELOMA
     Dates: start: 20090313

REACTIONS (5)
  - ANAEMIA [None]
  - EPISTAXIS [None]
  - MUSCULOSKELETAL PAIN [None]
  - OEDEMA PERIPHERAL [None]
  - THROMBOSIS [None]
